FAERS Safety Report 9767524 (Version 2)
Quarter: 2013Q4

REPORT INFORMATION
  Report Type: Report from Study
  Country: CN (occurrence: CN)
  Receive Date: 20131217
  Receipt Date: 20131217
  Transmission Date: 20140711
  Serious: Yes (Hospitalization)
  Sender: FDA-Public Use
  Company Number: CN-BAYER-2013-130067

PATIENT
  Age: 50 Year
  Sex: Male

DRUGS (2)
  1. NEXAVAR [Suspect]
     Indication: HEPATIC CANCER METASTATIC
     Dosage: 400 MG, BID
     Dates: start: 20131021, end: 20131128
  2. NEXAVAR [Suspect]
     Indication: HEPATIC CANCER METASTATIC
     Dosage: 400 MG, BID
     Route: 048
     Dates: start: 20131130

REACTIONS (3)
  - Pyrexia [Recovered/Resolved]
  - Gastric varices [Not Recovered/Not Resolved]
  - Abdominal pain [Not Recovered/Not Resolved]
